FAERS Safety Report 9227970 (Version 1)
Quarter: 2013Q2

REPORT INFORMATION
  Report Type: Spontaneous
  Country: US (occurrence: None)
  Receive Date: 20130411
  Receipt Date: 20130411
  Transmission Date: 20140414
  Serious: No
  Sender: FDA-Public Use
  Company Number: None

PATIENT
  Age: 31 Year
  Sex: Male

DRUGS (2)
  1. CLOZAPINE [Suspect]
     Dosage: 175MG AT BEDTIME PO?SEVERAL YEARS
     Route: 048
  2. CLOZAPINE [Suspect]

REACTIONS (1)
  - Myoclonus [None]
